FAERS Safety Report 4342970-6 (Version None)
Quarter: 2004Q2

REPORT INFORMATION
  Report Type: 
  Country: None (occurrence: None)
  Receive Date: 20040421
  Receipt Date: 20040119
  Transmission Date: 20050107
  Serious: Yes (Hospitalization, Other)
  Sender: FDA-Public Use
  Company Number: US-MERCK-0401USA01344

PATIENT
  Age: 86 Year
  Sex: Female
  Weight: 63 kg

DRUGS (8)
  1. PROZAC [Concomitant]
     Indication: ANXIETY
     Route: 048
  2. PREVACID [Concomitant]
     Indication: GASTROOESOPHAGEAL REFLUX DISEASE
     Route: 048
  3. SINGULAIR [Suspect]
     Indication: ASTHMA
     Route: 048
     Dates: start: 20030701, end: 20030801
  4. SINGULAIR [Suspect]
     Route: 048
     Dates: start: 20030901, end: 20031122
  5. SINGULAIR [Suspect]
     Route: 048
     Dates: start: 20030410
  6. SINGULAIR [Suspect]
     Indication: RHINITIS ALLERGIC
     Route: 048
     Dates: start: 20030701, end: 20030801
  7. SINGULAIR [Suspect]
     Route: 048
     Dates: start: 20030901, end: 20031122
  8. SINGULAIR [Suspect]
     Route: 048
     Dates: start: 20030410

REACTIONS (25)
  - ADVERSE EVENT [None]
  - ASTHENIA [None]
  - BURNING SENSATION [None]
  - CARDIAC DISORDER [None]
  - CEREBROVASCULAR ACCIDENT [None]
  - DECREASED APPETITE [None]
  - DYSGEUSIA [None]
  - FATIGUE [None]
  - FEELING ABNORMAL [None]
  - HEADACHE [None]
  - HYPERSENSITIVITY [None]
  - INCONTINENCE [None]
  - INSOMNIA [None]
  - IRRITABILITY [None]
  - LOSS OF CONSCIOUSNESS [None]
  - NAIL DISORDER [None]
  - NIGHTMARE [None]
  - PALPITATIONS [None]
  - PRURITUS [None]
  - SKIN ODOUR ABNORMAL [None]
  - SWELLING FACE [None]
  - TINNITUS [None]
  - TRANSIENT ISCHAEMIC ATTACK [None]
  - URTICARIA [None]
  - WEIGHT DECREASED [None]
